FAERS Safety Report 11623320 (Version 1)
Quarter: 2015Q4

REPORT INFORMATION
  Report Type: Spontaneous
  Country: US (occurrence: US)
  Receive Date: 20151013
  Receipt Date: 20151013
  Transmission Date: 20160304
  Serious: No
  Sender: FDA-Public Use
  Company Number: US-JNJFOC-20150513809

PATIENT
  Age: 83 Year
  Sex: Female
  Weight: 68.04 kg

DRUGS (8)
  1. CLONAZEPAM. [Concomitant]
     Active Substance: CLONAZEPAM
     Indication: ANXIETY
     Route: 065
  2. RISPERDAL [Concomitant]
     Active Substance: RISPERIDONE
     Indication: ANXIETY
     Route: 065
  3. IRON [Concomitant]
     Active Substance: IRON
     Indication: NUTRITIONAL SUPPLEMENTATION
     Dosage: DAILY
     Route: 065
  4. CRANBERRY CONCENTRATE [Concomitant]
     Active Substance: CRANBERRY CONCENTRATE
     Indication: NUTRITIONAL SUPPLEMENTATION
     Dosage: DAILY
     Route: 065
  5. TYLENOL REGULAR STRENGTH [Concomitant]
     Active Substance: ACETAMINOPHEN
     Indication: BACK PAIN
     Route: 065
  6. CRANBERRY/VITAMIN C [Concomitant]
     Indication: NUTRITIONAL SUPPLEMENTATION
     Dosage: DAILY
     Route: 065
  7. TYLENOL EXTRA STRENGTH [Suspect]
     Active Substance: ACETAMINOPHEN
     Indication: PAIN
     Route: 048
     Dates: start: 20150428
  8. CALCIUM [Concomitant]
     Active Substance: CALCIUM
     Indication: NUTRITIONAL SUPPLEMENTATION
     Route: 065

REACTIONS (3)
  - Product packaging issue [Unknown]
  - Drug ineffective [Unknown]
  - Burning sensation [Not Recovered/Not Resolved]
